FAERS Safety Report 23569511 (Version 1)
Quarter: 2024Q1

REPORT INFORMATION
  Report Type: Spontaneous
  Country: GB (occurrence: GB)
  Receive Date: 20240227
  Receipt Date: 20240227
  Transmission Date: 20240409
  Serious: Yes (Life-Threatening, Other)
  Sender: FDA-Public Use
  Company Number: GB-002147023-NVSC2024GB040054

PATIENT
  Sex: Male

DRUGS (1)
  1. TEGRETOL [Suspect]
     Active Substance: CARBAMAZEPINE
     Indication: Epilepsy
     Dosage: 3X200MG IN THE MORNING AND 3X200 MG AT NIGHT (1200MG IN TOTAL)
     Route: 048

REACTIONS (5)
  - Near death experience [Unknown]
  - Seizure [Unknown]
  - Drug ineffective [Unknown]
  - Brain injury [Unknown]
  - Product supply issue [Unknown]
